FAERS Safety Report 9607827 (Version 4)
Quarter: 2014Q4

REPORT INFORMATION
  Report Type: Spontaneous
  Country: US (occurrence: US)
  Receive Date: 20131009
  Receipt Date: 20141023
  Transmission Date: 20150529
  Serious: Yes (Death, Hospitalization, Disabling, Other)
  Sender: FDA-Public Use
  Company Number: US-009507513-0711USA04766

PATIENT
  Sex: Female
  Weight: 67.13 kg

DRUGS (2)
  1. FOSAMAX [Suspect]
     Active Substance: ALENDRONATE SODIUM
     Indication: OSTEOPOROSIS
     Dosage: 10 MG, QD
     Route: 048
     Dates: start: 1995, end: 200606
  2. FOSAMAX [Suspect]
     Active Substance: ALENDRONATE SODIUM
     Dosage: 70 MG, UNK
     Route: 048
     Dates: end: 200606

REACTIONS (50)
  - Hip arthroplasty [Unknown]
  - Laboratory test abnormal [Unknown]
  - Otitis media [Unknown]
  - Bundle branch block left [Unknown]
  - Myoclonus [Unknown]
  - Infusion related reaction [Unknown]
  - Deafness [Unknown]
  - Chronic obstructive pulmonary disease [Fatal]
  - Necrotising ulcerative periodontitis [Not Recovered/Not Resolved]
  - Skin graft [Unknown]
  - Eye disorder [Unknown]
  - Femur fracture [Unknown]
  - Cerumen impaction [Not Recovered/Not Resolved]
  - Adverse drug reaction [Unknown]
  - Decreased appetite [Unknown]
  - Adverse event [Unknown]
  - Osteomyelitis [Unknown]
  - Ischaemia [Unknown]
  - Fistula discharge [Unknown]
  - Pain in extremity [Unknown]
  - Lung neoplasm malignant [Unknown]
  - Impaired healing [Unknown]
  - Wound necrosis [Unknown]
  - Cataract [Unknown]
  - Left ventricular hypertrophy [Unknown]
  - Sinusitis [Unknown]
  - Rhinitis allergic [Unknown]
  - Otitis media [Unknown]
  - Hypernatraemia [Unknown]
  - Hyperglycaemia [Unknown]
  - Tooth fracture [Unknown]
  - Oral infection [Unknown]
  - Impaired healing [Unknown]
  - Blood iron decreased [Unknown]
  - Arthralgia [Unknown]
  - Hip fracture [Unknown]
  - Respiratory failure [Fatal]
  - Cerebrovascular accident [Unknown]
  - Eye disorder [Unknown]
  - Intervertebral disc degeneration [Unknown]
  - Cellulitis [Not Recovered/Not Resolved]
  - Pain [Unknown]
  - Insomnia [Unknown]
  - Dental caries [Unknown]
  - Ventricular hypokinesia [Unknown]
  - Cardiomyopathy [Fatal]
  - Cerebrovascular accident [Unknown]
  - Osteonecrosis of jaw [Not Recovered/Not Resolved]
  - Orthopaedic procedure [Unknown]
  - Retinal disorder [Unknown]

NARRATIVE: CASE EVENT DATE: 20020919
